FAERS Safety Report 9678833 (Version 1)
Quarter: 2013Q4

REPORT INFORMATION
  Report Type: Spontaneous
  Country: CH (occurrence: CH)
  Receive Date: 20131108
  Receipt Date: 20131108
  Transmission Date: 20140711
  Serious: Yes (Hospitalization)
  Sender: FDA-Public Use
  Company Number: CH-GLAXOSMITHKLINE-B0940585A

PATIENT
  Age: 78 Year
  Sex: Female

DRUGS (10)
  1. ZINACEF [Suspect]
     Indication: PROPHYLAXIS
     Dosage: 750MG SINGLE DOSE
     Route: 040
     Dates: start: 20130824, end: 20130824
  2. FENTANYL [Suspect]
     Indication: ANAESTHESIA
     Dosage: 250MCG PER DAY
     Route: 040
     Dates: start: 20130824, end: 20130824
  3. DISOPRIVAN [Suspect]
     Indication: ANAESTHESIA
     Dosage: 100MG SINGLE DOSE
     Route: 040
     Dates: start: 20130824, end: 20130824
  4. ROCURONIUM [Suspect]
     Indication: ANAESTHESIA
     Dosage: 36MG SINGLE DOSE
     Route: 040
     Dates: start: 20130824, end: 20130824
  5. CHLORHEXIDINE [Suspect]
     Indication: PROPHYLAXIS
     Route: 061
     Dates: start: 20130824, end: 20130824
  6. ASPIRIN [Concomitant]
     Indication: PERIPHERAL ARTERIAL OCCLUSIVE DISEASE
     Dosage: 100MG PER DAY
     Route: 048
  7. DAFALGAN [Concomitant]
     Indication: PAIN
     Route: 048
  8. TEMESTA [Concomitant]
     Route: 048
  9. APROVEL [Concomitant]
     Indication: ESSENTIAL HYPERTENSION
     Dosage: 150MG PER DAY
     Route: 048
  10. UNIFYL [Concomitant]
     Dosage: 200MG PER DAY

REACTIONS (3)
  - Type IV hypersensitivity reaction [Recovered/Resolved]
  - Hypotension [Recovered/Resolved]
  - Supraventricular tachycardia [Recovered/Resolved]
